FAERS Safety Report 8582719-4 (Version None)
Quarter: 2012Q3

REPORT INFORMATION
  Report Type: 
  Country: None (occurrence: None)
  Receive Date: 20120809
  Receipt Date: 20120730
  Transmission Date: 20120928
  Serious: Yes (Other)
  Sender: FDA-Public Use
  Company Number: JP-JNJFOC-20120608100

PATIENT
  Age: 58 Year
  Sex: Female
  Weight: 44 kg

DRUGS (7)
  1. RISEDRONATE SODIUM [Concomitant]
     Indication: OSTEOPOROSIS
  2. GOLIMUMAB [Suspect]
     Route: 058
     Dates: start: 20120627
  3. OMEPRAZOLE [Concomitant]
     Indication: PROPHYLAXIS
     Route: 048
  4. GOLIMUMAB [Suspect]
     Indication: RHEUMATOID ARTHRITIS
     Route: 058
     Dates: start: 20120530
  5. METHOTREXATE [Concomitant]
     Indication: RHEUMATOID ARTHRITIS
     Route: 048
  6. FOLIC ACID [Concomitant]
     Indication: PROPHYLAXIS
  7. LOXONIN [Concomitant]
     Indication: RHEUMATOID ARTHRITIS
     Route: 048

REACTIONS (2)
  - HENOCH-SCHONLEIN PURPURA [None]
  - BLISTER [None]
